FAERS Safety Report 12702667 (Version 1)
Quarter: 2016Q3

REPORT INFORMATION
  Report Type: Spontaneous
  Country: RU (occurrence: RU)
  Receive Date: 20160831
  Receipt Date: 20160831
  Transmission Date: 20161109
  Serious: Yes (Hospitalization, Other)
  Sender: FDA-Public Use
  Company Number: RU-TEVA-688855ISR

PATIENT
  Age: 46 Year
  Sex: Female

DRUGS (6)
  1. DOXORUBICIN [Suspect]
     Active Substance: DOXORUBICIN
     Indication: BREAST CANCER
     Dates: start: 201403
  2. DOXORUBICIN [Suspect]
     Active Substance: DOXORUBICIN
     Indication: BREAST CANCER
     Dates: start: 201402
  3. TRASTUZUMAB [Suspect]
     Active Substance: TRASTUZUMAB
     Indication: BREAST CANCER
     Dates: start: 20130514, end: 20140109
  4. DOXORUBICIN [Suspect]
     Active Substance: DOXORUBICIN
     Indication: BREAST CANCER
     Dosage: 6 CHEMOTHERAPY TREATMENTS; 620 MG TOTAL DOSE
     Dates: start: 20121108, end: 201302
  5. TRASTUZUMAB [Suspect]
     Active Substance: TRASTUZUMAB
     Indication: BREAST CANCER
     Dates: start: 20140729
  6. PACLITAXEL. [Suspect]
     Active Substance: PACLITAXEL
     Indication: METASTASES TO LIVER
     Dosage: SIX TREATMENTS WERE CONDUCTED WITH TAXANES

REACTIONS (4)
  - Cardiomyopathy [Not Recovered/Not Resolved]
  - Hydrothorax [Recovering/Resolving]
  - Cardiac failure chronic [Not Recovered/Not Resolved]
  - Pericardial disease [Not Recovered/Not Resolved]

NARRATIVE: CASE EVENT DATE: 2014
